FAERS Safety Report 23543407 (Version 1)
Quarter: 2024Q1

REPORT INFORMATION
  Report Type: Report from Study
  Country: IT (occurrence: IT)
  Receive Date: 20240220
  Receipt Date: 20240220
  Transmission Date: 20240410
  Serious: Yes (Hospitalization)
  Sender: FDA-Public Use
  Company Number: None

PATIENT
  Age: 64 Year
  Sex: Female
  Weight: 70 kg

DRUGS (4)
  1. PACLITAXEL [Suspect]
     Active Substance: PACLITAXEL
     Indication: HER2 positive breast cancer
     Dosage: FIRST CYCLE 10/10/2023, DRUG DILUTED IN 500 CC OF PHYSIOLOGICAL SOLUTION
     Dates: start: 20231227, end: 20231227
  2. TRASTUZUMAB [Suspect]
     Active Substance: TRASTUZUMAB
     Indication: HER2 positive breast cancer
     Dosage: CONCENTRATE DILUTED IN 250 CC OF PHYSIOLOGICAL SOLUTION; 150 MG VIAL
     Dates: start: 20231227, end: 20231227
  3. PERJETA [Suspect]
     Active Substance: PERTUZUMAB
     Indication: HER2 positive breast cancer
     Dosage: CONCENTRATE DILUTED IN 250 CC OF PHYSIOLOGICAL SOLUTION;
     Dates: start: 20231227, end: 20231227
  4. PACLITAXEL [Suspect]
     Active Substance: PACLITAXEL
     Indication: HER2 positive breast cancer
     Dosage: FIRST CYCLE 10/10/2023, DRUG DILUTED IN 500 CC OF PHYSIOLOGICAL SOLUTION
     Dates: start: 20240103, end: 20240103

REACTIONS (3)
  - Atrial fibrillation [Recovering/Resolving]
  - Ejection fraction decreased [Recovering/Resolving]
  - Oedema [Recovered/Resolved]

NARRATIVE: CASE EVENT DATE: 20240106
